FAERS Safety Report 9334308 (Version 7)
Quarter: 2014Q3

REPORT INFORMATION
  Report Type: Spontaneous
  Country: US (occurrence: US)
  Receive Date: 20130606
  Receipt Date: 20140822
  Transmission Date: 20150326
  Serious: Yes (Hospitalization, Disabling, Other)
  Sender: FDA-Public Use
  Company Number: US-009507513-1305USA017796

PATIENT
  Sex: Female
  Weight: 68.48 kg

DRUGS (5)
  1. BONIVA [Suspect]
     Active Substance: IBANDRONATE SODIUM
     Indication: OSTEOPOROSIS PROPHYLAXIS
  2. FOSAMAX [Suspect]
     Active Substance: ALENDRONATE SODIUM
     Route: 048
  3. BONIVA [Suspect]
     Active Substance: IBANDRONATE SODIUM
     Indication: OSTEOPENIA
  4. FOSAMAX PLUS D [Suspect]
     Active Substance: ALENDRONATE SODIUM\CHOLECALCIFEROL
     Indication: OSTEOPOROSIS PROPHYLAXIS
     Dosage: 70 MG, UNK
     Route: 048
     Dates: start: 200212, end: 200911
  5. BONIVA [Suspect]
     Active Substance: IBANDRONATE SODIUM
     Indication: OSTEOPOROSIS
     Dosage: 150 MG, UNK
     Route: 048
     Dates: start: 200912, end: 201112

REACTIONS (36)
  - Spinal fusion surgery [Unknown]
  - Bone graft [Unknown]
  - Osteoporosis [Unknown]
  - Gastrooesophageal reflux disease [Unknown]
  - Pain in extremity [Unknown]
  - Bunion operation [Unknown]
  - Fracture delayed union [Recovered/Resolved]
  - Adverse event [Unknown]
  - Hypothyroidism [Unknown]
  - Paraesthesia [Unknown]
  - Dental necrosis [Unknown]
  - Back injury [Unknown]
  - Oroantral fistula [Recovered/Resolved]
  - Dental necrosis [Unknown]
  - Hip fracture [Recovered/Resolved]
  - Tooth extraction [Unknown]
  - Oral herpes [Unknown]
  - Device failure [Unknown]
  - Osteonecrosis of jaw [Not Recovered/Not Resolved]
  - Hyperlipidaemia [Unknown]
  - Muscle tightness [Unknown]
  - Arthralgia [Unknown]
  - Crohn^s disease [Unknown]
  - Low turnover osteopathy [Unknown]
  - Tooth extraction [Unknown]
  - Accident at work [Unknown]
  - Cough [Unknown]
  - Cataract operation [Unknown]
  - Bone graft [Unknown]
  - Femur fracture [Recovered/Resolved]
  - Intramedullary rod insertion [Unknown]
  - Insomnia [Unknown]
  - Adverse event [Unknown]
  - Bladder operation [Unknown]
  - Dental necrosis [Unknown]
  - Tooth abscess [Unknown]

NARRATIVE: CASE EVENT DATE: 200610
